FAERS Safety Report 9904384 (Version 2)
Quarter: 2014Q1

REPORT INFORMATION
  Report Type: Spontaneous
  Country: US (occurrence: US)
  Receive Date: 20140218
  Receipt Date: 20140221
  Transmission Date: 20141002
  Serious: Yes (Other)
  Sender: FDA-Public Use
  Company Number: US-ROCHE-1346882

PATIENT
  Sex: Female

DRUGS (6)
  1. RITUXAN [Suspect]
     Indication: NEUROMYELITIS OPTICA
     Route: 065
     Dates: start: 20140123
  2. BACLOFEN [Concomitant]
     Dosage: AS NEEDED
     Route: 065
  3. FOLIC ACID [Concomitant]
     Route: 065
  4. LYRICA [Concomitant]
     Route: 065
  5. TIAGABINE HYDROCHLORIDE [Concomitant]
     Route: 065
  6. VESICARE [Concomitant]
     Route: 065

REACTIONS (2)
  - Asthenia [Unknown]
  - Gait disturbance [Unknown]
